FAERS Safety Report 16114551 (Version 12)
Quarter: 2021Q1

REPORT INFORMATION
  Report Type: Spontaneous
  Country: FR (occurrence: FR)
  Receive Date: 20190325
  Receipt Date: 20210125
  Transmission Date: 20210419
  Serious: Yes (Life-Threatening, Hospitalization, Disabling, Other)
  Sender: FDA-Public Use
  Company Number: FR-PFIZER INC-2019123943

PATIENT
  Age: 56 Year
  Sex: Female
  Weight: 97 kg

DRUGS (10)
  1. DOLIPRANE [Concomitant]
     Active Substance: ACETAMINOPHEN
     Indication: SPONDYLOARTHROPATHY
     Dosage: 1 G, UNK
     Dates: start: 2009
  2. SALAZOPYRINE [Suspect]
     Active Substance: SULFASALAZINE
     Dosage: 1000 MG, 2X/DAY
     Route: 048
     Dates: start: 20190124, end: 20190130
  3. ZAMUDOL [Concomitant]
     Active Substance: TRAMADOL HYDROCHLORIDE
     Indication: SPONDYLOARTHROPATHY
     Dosage: 50 MG, 2X/DAY
     Route: 048
     Dates: start: 2018
  4. PREDNISONE. [Concomitant]
     Active Substance: PREDNISONE
     Dosage: 20 MG, 1X/DAY
     Dates: start: 201901
  5. VERAPAMIL HYDROCHLOIRDE [Concomitant]
     Active Substance: VERAPAMIL HYDROCHLORIDE
     Indication: HYPERTENSION
     Dosage: 240 MG, 1X/DAY
     Route: 048
     Dates: start: 1995, end: 201902
  6. PREDNISONE. [Concomitant]
     Active Substance: PREDNISONE
     Indication: SPONDYLOARTHROPATHY
     Dosage: 20 MG, 1X/DAY
     Route: 048
     Dates: start: 20190130, end: 201902
  7. SALAZOPYRINE [Suspect]
     Active Substance: SULFASALAZINE
     Indication: SPONDYLOARTHROPATHY
     Dosage: 500 MG, 1X/DAY
     Route: 048
     Dates: start: 20190103, end: 20190109
  8. PARACETAMOL [Concomitant]
     Active Substance: ACETAMINOPHEN
     Dosage: 1 G, UNK
     Dates: start: 2009
  9. SALAZOPYRINE [Suspect]
     Active Substance: SULFASALAZINE
     Dosage: 1000 MG, DAILY
     Route: 048
     Dates: start: 20190110, end: 20190116
  10. SALAZOPYRINE [Suspect]
     Active Substance: SULFASALAZINE
     Dosage: 1500 MG, DAILY
     Route: 048
     Dates: start: 20190117, end: 20190123

REACTIONS (13)
  - Fatigue [Unknown]
  - Loss of personal independence in daily activities [Unknown]
  - Dry eye [Unknown]
  - Off label use [Unknown]
  - Toxic epidermal necrolysis [Recovered/Resolved with Sequelae]
  - Hepatocellular injury [Unknown]
  - Decubitus ulcer [Not Recovered/Not Resolved]
  - Pain in extremity [Unknown]
  - Keratitis [Not Recovered/Not Resolved]
  - Photophobia [Not Recovered/Not Resolved]
  - Conjunctivitis [Not Recovered/Not Resolved]
  - Peripheral sensorimotor neuropathy [Not Recovered/Not Resolved]
  - Amylase increased [Recovered/Resolved]

NARRATIVE: CASE EVENT DATE: 20190128
